FAERS Safety Report 5911712-2 (Version None)
Quarter: 2008Q4

REPORT INFORMATION
  Report Type: 
  Country: None (occurrence: None)
  Receive Date: 20081003
  Receipt Date: 20080926
  Transmission Date: 20090506
  Serious: Yes (Hospitalization)
  Sender: FDA-Public Use
  Company Number: CFNT-286

PATIENT
  Age: 83 Year
  Sex: Male

DRUGS (9)
  1. SPECTRACEF [Suspect]
     Indication: RESPIRATORY TRACT INFECTION
     Dosage: ORAL
     Route: 048
     Dates: end: 20080914
  2. SPIRIVA [Concomitant]
  3. SYMBICORT (BUDESONIDE/FORMOZEROL) [Concomitant]
  4. SINTROM (ACENOCUMEROL) [Concomitant]
  5. MASDIL RETARD (DILTIAZEM) [Concomitant]
  6. OMEPRAZOLE [Concomitant]
  7. OMNIC (TAMSULOSIN) [Concomitant]
  8. ALLOPURIONAL [Concomitant]
  9. NOVONORM (REPAGLINIDE) [Concomitant]

REACTIONS (1)
  - MYOCLONUS [None]
